FAERS Safety Report 7468177-1 (Version None)
Quarter: 2011Q2

REPORT INFORMATION
  Report Type: 
  Country: None (occurrence: None)
  Receive Date: 20110509
  Receipt Date: 20110414
  Transmission Date: 20111010
  Serious: Yes (Hospitalization)
  Sender: FDA-Public Use
  Company Number: US-ALEXION-A201100032

PATIENT
  Sex: Female

DRUGS (8)
  1. HYDROCORTISONE [Concomitant]
     Indication: ADDISON'S DISEASE
     Dosage: UNK
  2. FOSAMAX [Concomitant]
     Indication: BONE DISORDER
     Dosage: UNK
  3. FORAREB [Concomitant]
     Indication: ADDISON'S DISEASE
  4. THYROID TAB [Concomitant]
     Dosage: UNK
  5. FOLIC ACID [Concomitant]
     Indication: PAROXYSMAL NOCTURNAL HAEMOGLOBINURIA
     Dosage: UNK
  6. PROZAC [Concomitant]
     Indication: DEPRESSION
     Dosage: UNK
  7. ANTIDEPRESSANTS [Concomitant]
     Dosage: UNK
  8. SOLIRIS [Suspect]
     Indication: PAROXYSMAL NOCTURNAL HAEMOGLOBINURIA
     Dosage: UNK
     Route: 042

REACTIONS (5)
  - VIRAL INFECTION [None]
  - DEPRESSION [None]
  - ANAEMIA [None]
  - DECREASED APPETITE [None]
  - DYSPNOEA [None]
